FAERS Safety Report 5846716-1 (Version None)
Quarter: 2008Q3

REPORT INFORMATION
  Report Type: 
  Country: None (occurrence: None)
  Receive Date: 20080815
  Receipt Date: 20080812
  Transmission Date: 20090109
  Serious: Yes (Life-Threatening, Hospitalization, Disabling, Other)
  Sender: FDA-Public Use
  Company Number: US-AVENTIS-200419776US

PATIENT
  Sex: Male
  Weight: 121.8 kg

DRUGS (9)
  1. KETEK [Suspect]
     Dosage: DOSE: 400 (2 TABLETS)
     Route: 048
     Dates: start: 20041220, end: 20041220
  2. DIOVANE [Concomitant]
     Dosage: DOSE: UNK
  3. SEREVENT [Concomitant]
     Dosage: DOSE: 1 PUFF
  4. PAXIL [Concomitant]
     Dosage: DOSE: UNK
  5. SINGULAIR [Concomitant]
     Route: 048
  6. ASPIRIN [Concomitant]
     Dosage: DOSE: UNK
  7. PREDNISONE TAB [Concomitant]
     Dosage: DOSE: UNK
  8. MESTINON [Concomitant]
     Dosage: DOSE: UNK
  9. DIAZEPAM [Concomitant]
     Dosage: DOSE: UNK

REACTIONS (6)
  - DIPLOPIA [None]
  - DYSPNOEA [None]
  - LOSS OF CONSCIOUSNESS [None]
  - MYASTHENIA GRAVIS [None]
  - RESPIRATORY ARREST [None]
  - RESPIRATORY FAILURE [None]
